FAERS Safety Report 20625414 (Version 1)
Quarter: 2022Q1

REPORT INFORMATION
  Report Type: Spontaneous
  Country: US (occurrence: None)
  Receive Date: 20220323
  Receipt Date: 20220323
  Transmission Date: 20220423
  Serious: No
  Sender: FDA-Public Use
  Company Number: US-ROCHE-2834016

PATIENT
  Sex: Male

DRUGS (6)
  1. ERIVEDGE [Suspect]
     Active Substance: VISMODEGIB
     Indication: Dysplastic naevus
     Route: 048
     Dates: start: 20210506
  2. GABAPENTIN [Concomitant]
     Active Substance: GABAPENTIN
  3. GLIPIZIDE [Concomitant]
     Active Substance: GLIPIZIDE
  4. LISINOPRIL [Concomitant]
     Active Substance: LISINOPRIL
  5. ONDANSETRON [Concomitant]
     Active Substance: ONDANSETRON
  6. TRAMADOL [Concomitant]
     Active Substance: TRAMADOL

REACTIONS (5)
  - Myalgia [Not Recovered/Not Resolved]
  - Rash [Not Recovered/Not Resolved]
  - Skin exfoliation [Not Recovered/Not Resolved]
  - Back pain [Not Recovered/Not Resolved]
  - Blood disorder [Not Recovered/Not Resolved]
